FAERS Safety Report 20346060 (Version 1)
Quarter: 2022Q1

REPORT INFORMATION
  Report Type: Spontaneous
  Country: US (occurrence: None)
  Receive Date: 20220117
  Receipt Date: 20220117
  Transmission Date: 20220423
  Serious: No
  Sender: FDA-Public Use
  Company Number: None

PATIENT
  Age: 65 Year
  Sex: Female

DRUGS (1)
  1. ENBREL [Suspect]
     Active Substance: ETANERCEPT
     Dosage: 50MG OTHER SUBCUTANEOUS
     Route: 058
     Dates: start: 202109

REACTIONS (6)
  - SARS-CoV-2 test positive [None]
  - Speech disorder [None]
  - Gait disturbance [None]
  - Thrombosis [None]
  - Infection [None]
  - Therapy interrupted [None]

NARRATIVE: CASE EVENT DATE: 20220110
